FAERS Safety Report 5627528-0 (Version None)
Quarter: 2008Q1

REPORT INFORMATION
  Report Type: 
  Country: None (occurrence: None)
  Receive Date: 20080215
  Receipt Date: 20071211
  Transmission Date: 20080703
  Serious: No
  Sender: FDA-Public Use
  Company Number: A0694209A

PATIENT
  Age: 36 Year
  Sex: Female

DRUGS (4)
  1. COREG CR [Suspect]
     Indication: HYPERTENSION
     Dosage: 20MG TWICE PER DAY
     Route: 048
     Dates: start: 20071019
  2. CRESTOR [Concomitant]
  3. ALLEGRA [Concomitant]
  4. VERAMYST [Concomitant]

REACTIONS (5)
  - DIZZINESS [None]
  - DRUG ADMINISTRATION ERROR [None]
  - HEART RATE IRREGULAR [None]
  - NAUSEA [None]
  - PALPITATIONS [None]
